FAERS Safety Report 15833278 (Version 1)
Quarter: 2019Q1

REPORT INFORMATION
  Report Type: Spontaneous
  Country: ES (occurrence: ES)
  Receive Date: 20190116
  Receipt Date: 20190116
  Transmission Date: 20190417
  Serious: Yes (Hospitalization)
  Sender: FDA-Public Use
  Company Number: ES-PFIZER INC-2019020473

PATIENT
  Age: 59 Year
  Sex: Male

DRUGS (6)
  1. HIDROFEROL [Concomitant]
     Active Substance: CALCIFEDIOL
     Dosage: 266 UG, EVERY 15 DAYS
     Route: 048
  2. OMEPRAZOL CINFAMED [Concomitant]
     Dosage: 20 MG, 1X/DAY
     Route: 048
  3. ATORVASTATINA CINFA [Concomitant]
     Active Substance: ATORVASTATIN CALCIUM
     Dosage: 20 MG, 1X/DAY
     Route: 048
  4. SUTENT [Suspect]
     Active Substance: SUNITINIB MALATE
     Indication: RENAL CANCER
     Route: 048
     Dates: start: 20160601, end: 20181126
  5. TROMALYT [Concomitant]
     Active Substance: ASPIRIN
     Dosage: 300 MG, 1X/DAY
     Route: 048
  6. EUTIROX [Concomitant]
     Active Substance: LEVOTHYROXINE SODIUM
     Dosage: 100 MG, 1X/DAY
     Route: 048

REACTIONS (1)
  - Intestinal fistula [Recovered/Resolved]

NARRATIVE: CASE EVENT DATE: 20181126
